FAERS Safety Report 5663321-0 (Version None)
Quarter: 2008Q1

REPORT INFORMATION
  Report Type: 
  Country: None (occurrence: None)
  Receive Date: 20080313
  Receipt Date: 20080306
  Transmission Date: 20080703
  Serious: No
  Sender: FDA-Public Use
  Company Number: US-BAXTER-2008BH002070

PATIENT
  Age: 25 Year
  Sex: Female

DRUGS (1)
  1. HEPARIN SODIUM [Suspect]
     Indication: ANTIPHOSPHOLIPID SYNDROME
     Dosage: DOSE UNIT:UNKNOWN
     Route: 058
     Dates: start: 20071201, end: 20080214

REACTIONS (5)
  - DISTURBANCE IN ATTENTION [None]
  - DIZZINESS [None]
  - DRUG EXPOSURE DURING PREGNANCY [None]
  - NAUSEA [None]
  - PALLOR [None]
